FAERS Safety Report 13971832 (Version 1)
Quarter: 2017Q3

REPORT INFORMATION
  Report Type: Spontaneous
  Country: US (occurrence: US)
  Receive Date: 20170914
  Receipt Date: 20170914
  Transmission Date: 20171128
  Serious: No
  Sender: FDA-Public Use
  Company Number: None

PATIENT
  Age: 67 Year
  Sex: Female
  Weight: 72.9 kg

DRUGS (6)
  1. ATOROVASTATIN [Concomitant]
  2. MAGNESIUM [Concomitant]
     Active Substance: MAGNESIUM
  3. LIPITOR [Concomitant]
     Active Substance: ATORVASTATIN CALCIUM
  4. LEVOTHYROXINE. [Concomitant]
     Active Substance: LEVOTHYROXINE
  5. RANITIDINE. [Suspect]
     Active Substance: RANITIDINE
     Indication: DYSPEPSIA
     Dosage: ?          QUANTITY:200 TABLET(S);?
     Route: 048
     Dates: start: 20170903, end: 20170906
  6. BABY ASPIRIN [Concomitant]
     Active Substance: ASPIRIN

REACTIONS (5)
  - Abdominal pain upper [None]
  - Abdominal distension [None]
  - Product substitution issue [None]
  - Flatulence [None]
  - Product formulation issue [None]

NARRATIVE: CASE EVENT DATE: 20170911
